FAERS Safety Report 6264072-4 (Version None)
Quarter: 2009Q3

REPORT INFORMATION
  Report Type: 
  Country: None (occurrence: None)
  Receive Date: 20090706
  Receipt Date: 20080602
  Transmission Date: 20100115
  Serious: Yes (Hospitalization)
  Sender: FDA-Public Use
  Company Number: 569074

PATIENT
  Age: 67 Year
  Sex: Male

DRUGS (5)
  1. MYCOPHENOLATE MOFETIL [Suspect]
     Indication: IMMUNOSUPPRESSION
  2. VALGANCICLOVIR HCL [Suspect]
     Indication: ANTIVIRAL PROPHYLAXIS
     Dosage: 900 MG DAILY
  3. CORTICOSTEROID NOS (CORTICOSTEROID NOS) [Suspect]
     Indication: IMMUNOSUPPRESSION
  4. TACROLIMUS [Suspect]
     Indication: IMMUNOSUPPRESSION
  5. 1 DRUG SUSPECTED (GENERIC UNKNOWN) [Suspect]
     Indication: IMMUNOSUPPRESSION

REACTIONS (1)
  - CYTOMEGALOVIRUS INFECTION [None]
